FAERS Safety Report 26185154 (Version 1)
Quarter: 2025Q4

REPORT INFORMATION
  Report Type: Spontaneous
  Country: JP (occurrence: JP)
  Receive Date: 20251222
  Receipt Date: 20251222
  Transmission Date: 20260117
  Serious: Yes (Death, Hospitalization, Other)
  Sender: COLLEGIUM PHARMACEUTICAL
  Company Number: JP-shionogi-202500010472

PATIENT

DRUGS (17)
  1. SYMPROIC [Suspect]
     Active Substance: NALDEMEDINE TOSYLATE
     Indication: Product used for unknown indication
     Dosage: 0.2 MILLIGRAM, UNKNOWN
     Route: 065
     Dates: start: 20250626, end: 20250727
  2. PREDONINE [Suspect]
     Active Substance: PREDNISOLONE
     Indication: Liver disorder
     Dosage: 60 MILLIGRAM, QD
     Route: 042
     Dates: start: 20250524
  3. PREDONINE [Suspect]
     Active Substance: PREDNISOLONE
     Dosage: DOSE GRADUALLY REDUCED
     Route: 042
     Dates: start: 202505, end: 20250529
  4. PREDONINE [Suspect]
     Active Substance: PREDNISOLONE
     Dosage: ADMINISTRATION RESTARTED (80 MG/QD)
     Route: 042
     Dates: start: 20250711
  5. PREDONINE [Suspect]
     Active Substance: PREDNISOLONE
     Dosage: 40 MILLIGRAM, QD (DOSE REDUCED)
     Route: 042
     Dates: start: 20250716
  6. OXYCODONE HYDROCHLORIDE [Suspect]
     Active Substance: OXYCODONE HYDROCHLORIDE
     Indication: Product used for unknown indication
     Dosage: UNK UNK, UNKNOWN
     Route: 065
     Dates: start: 20250626, end: 20250725
  7. PADCEV [Suspect]
     Active Substance: ENFORTUMAB VEDOTIN-EJFV
     Indication: Transitional cell carcinoma
     Dosage: 86.125 MILLIGRAM,  QD CYCLIC
     Route: 042
     Dates: start: 20250501, end: 20250501
  8. PADCEV [Suspect]
     Active Substance: ENFORTUMAB VEDOTIN-EJFV
     Dosage: 86.125 MILLIGRAM, QD CYCLIC
     Route: 042
     Dates: start: 20250508, end: 20250508
  9. PADCEV [Suspect]
     Active Substance: ENFORTUMAB VEDOTIN-EJFV
     Dosage: 86.125 MILLIGRAM, QD CYCLIC
     Route: 042
     Dates: start: 20250522, end: 20250522
  10. PADCEV [Suspect]
     Active Substance: ENFORTUMAB VEDOTIN-EJFV
     Dosage: 82.7 MILLIGRAM, QD CYCLIC (WEEK 1 CYCLE 2)
     Route: 042
     Dates: start: 20250626, end: 20250626
  11. PADCEV [Suspect]
     Active Substance: ENFORTUMAB VEDOTIN-EJFV
     Dosage: 82.7 MILLIGRAM, QD CYCLIC (WEEK 2 CYCLE 2)
     Route: 042
     Dates: start: 20250703, end: 20250703
  12. KEYTRUDA [Suspect]
     Active Substance: PEMBROLIZUMAB
     Indication: Transitional cell carcinoma
     Dosage: 200 MILLIGRAM, QD CYCLIC (CYCLE 1)
     Route: 042
     Dates: start: 20250501, end: 20250501
  13. KEYTRUDA [Suspect]
     Active Substance: PEMBROLIZUMAB
     Dosage: 200 MILLIGRAM, CYCLIC (CYCLE 2)
     Route: 042
     Dates: start: 20250522, end: 20250522
  14. LOXOPROFEN SODIUM [Concomitant]
     Active Substance: LOXOPROFEN SODIUM
     Indication: Product used for unknown indication
     Dosage: UNK UNK, UNKNOWN
     Route: 065
     Dates: start: 20250626, end: 20250725
  15. MAGNESIUM OXIDE [Concomitant]
     Active Substance: MAGNESIUM OXIDE
     Indication: Product used for unknown indication
     Dosage: UNK UNK, UNKNOWN
     Route: 065
     Dates: start: 20250626, end: 20250725
  16. SILODOSIN OD [Concomitant]
     Indication: Product used for unknown indication
     Dosage: UNK UNK, UNKNOWN
     Route: 065
     Dates: start: 20250626, end: 20250725
  17. REBAMIPIDE [Concomitant]
     Active Substance: REBAMIPIDE
     Indication: Product used for unknown indication
     Dosage: UNK UNK, UNKNOWN
     Route: 065
     Dates: start: 20250626, end: 20250725

REACTIONS (3)
  - Interstitial lung disease [Fatal]
  - Acute respiratory distress syndrome [Fatal]
  - Pneumocystis jirovecii pneumonia [Fatal]

NARRATIVE: CASE EVENT DATE: 20250705
